FAERS Safety Report 13182034 (Version 1)
Quarter: 2017Q1

REPORT INFORMATION
  Report Type: Spontaneous
  Country: US (occurrence: US)
  Receive Date: 20170202
  Receipt Date: 20170202
  Transmission Date: 20170428
  Serious: No
  Sender: FDA-Public Use
  Company Number: US-IMPAX LABORATORIES, INC-2016-IPXL-02208

PATIENT
  Sex: Male
  Weight: 75 kg

DRUGS (1)
  1. RYTARY [Suspect]
     Active Substance: CARBIDOPA\LEVODOPA
     Indication: PARKINSON^S DISEASE
     Dosage: 145 MG, THREE TIMES A DAY
     Route: 065
     Dates: start: 2016, end: 20161116

REACTIONS (7)
  - Blood pressure decreased [Unknown]
  - Pollakiuria [Unknown]
  - Balance disorder [Unknown]
  - Asthenia [Unknown]
  - Impaired driving ability [Unknown]
  - Dizziness [Unknown]
  - Tremor [Unknown]

NARRATIVE: CASE EVENT DATE: 2016
